FAERS Safety Report 10753656 (Version 2)
Quarter: 2015Q1

REPORT INFORMATION
  Report Type: Spontaneous
  Country: BR (occurrence: BR)
  Receive Date: 20150201
  Receipt Date: 20150212
  Transmission Date: 20150721
  Serious: Yes (Other)
  Sender: FDA-Public Use
  Company Number: PHHY2015BR010805

PATIENT
  Sex: Male
  Weight: 62 kg

DRUGS (3)
  1. ZOMETA [Suspect]
     Active Substance: ZOLEDRONIC ACID
     Indication: BONE DISORDER
     Dosage: UNK UKN, QMO
     Route: 042
     Dates: start: 20141204, end: 20150105
  2. OMEPRAZOLE. [Concomitant]
     Active Substance: OMEPRAZOLE
     Indication: ABDOMINAL PAIN UPPER
     Dosage: 2 DF, QD (SINCE 1 AND HALF YEAR)
     Route: 048
  3. AFINITOR [Suspect]
     Active Substance: EVEROLIMUS
     Indication: LUNG NEOPLASM MALIGNANT
     Dosage: 10 MG (1 TABLET), QD
     Route: 048
     Dates: start: 20141206

REACTIONS (9)
  - Osteomyelitis [Unknown]
  - Mass [Not Recovered/Not Resolved]
  - Lymphadenopathy [Unknown]
  - Abdominal pain upper [Recovered/Resolved]
  - Bone pain [Recovering/Resolving]
  - Acne [Not Recovered/Not Resolved]
  - Urinary tract infection [Unknown]
  - Skin disorder [Unknown]
  - Retching [Recovered/Resolved]

NARRATIVE: CASE EVENT DATE: 20141214
